FAERS Safety Report 6210243-2 (Version None)
Quarter: 2009Q2

REPORT INFORMATION
  Report Type: 
  Country: None (occurrence: None)
  Receive Date: 20090601
  Receipt Date: 20090129
  Transmission Date: 20091009
  Serious: No
  Sender: FDA-Public Use
  Company Number: US-BAYER-200838623NA

PATIENT
  Age: 54 Year
  Sex: Female
  Weight: 83 kg

DRUGS (8)
  1. ULTRAVIST (PHARMACY BULK) [Suspect]
     Indication: COMPUTERISED TOMOGRAM ABDOMEN
     Dosage: TOTAL DAILY DOSE: 100 ML  UNIT DOSE: 500 ML
     Route: 042
     Dates: start: 20081111, end: 20081111
  2. CRESTOR [Concomitant]
  3. HUMATROPE [Concomitant]
  4. HRT [Concomitant]
  5. PROTONIX [Concomitant]
  6. BYSTOLIC [Concomitant]
  7. AMOXCILLIN [Concomitant]
  8. READI-CAT 2 [Concomitant]
     Indication: COMPUTERISED TOMOGRAM ABDOMEN
     Route: 048
     Dates: start: 20081111, end: 20081111

REACTIONS (2)
  - PRURITUS [None]
  - URTICARIA [None]
